FAERS Safety Report 20712592 (Version 1)
Quarter: 2022Q2

REPORT INFORMATION
  Report Type: Spontaneous
  Country: JP (occurrence: JP)
  Receive Date: 20220415
  Receipt Date: 20220415
  Transmission Date: 20220721
  Serious: Yes (Death, Other)
  Sender: FDA-Public Use
  Company Number: JP-CHUGAI-2022010298AA

PATIENT
  Age: 9 Decade
  Sex: Female

DRUGS (1)
  1. MIRCERA [Suspect]
     Active Substance: METHOXY POLYETHYLENE GLYCOL-EPOETIN BETA
     Indication: Nephrogenic anaemia
     Dosage: 100 MICROGRAM, ONCE/4WEEKS
     Route: 058

REACTIONS (5)
  - Death [Fatal]
  - Pseudomonas infection [Unknown]
  - Staphylococcal infection [Unknown]
  - Serum ferritin increased [Unknown]
  - Haemoglobin decreased [Unknown]
